FAERS Safety Report 23711323 (Version 1)
Quarter: 2024Q2

REPORT INFORMATION
  Report Type: Spontaneous
  Country: UZ (occurrence: UZ)
  Receive Date: 20240405
  Receipt Date: 20240405
  Transmission Date: 20240716
  Serious: Yes (Hospitalization, Other)
  Sender: FDA-Public Use
  Company Number: UZ-SA-SAC20240128000009

PATIENT
  Age: 50 Year
  Sex: Female

DRUGS (4)
  1. APIDRA [Suspect]
     Active Substance: INSULIN GLULISINE
     Indication: Diabetes mellitus
     Dosage: 18 IU, QD
     Route: 058
     Dates: start: 20231216, end: 202312
  2. APIDRA [Suspect]
     Active Substance: INSULIN GLULISINE
     Dosage: 20 IU
     Dates: start: 202312, end: 20231226
  3. APIDRA [Suspect]
     Active Substance: INSULIN GLULISINE
     Dosage: 15 IU, QD
     Route: 058
     Dates: start: 202312, end: 202312
  4. INSULIN NOS [Concomitant]
     Active Substance: INSULIN NOS
     Dosage: 10 U, QD

REACTIONS (7)
  - Ketoacidosis [Recovered/Resolved]
  - Dyspepsia [Recovered/Resolved]
  - Drug ineffective [Recovered/Resolved]
  - Thirst [Recovered/Resolved]
  - Pollakiuria [Recovered/Resolved]
  - COVID-19 [Unknown]
  - Intentional product use issue [Unknown]

NARRATIVE: CASE EVENT DATE: 20231201
